FAERS Safety Report 4311089-2 (Version None)
Quarter: 2004Q1

REPORT INFORMATION
  Report Type: 
  Country: None (occurrence: None)
  Receive Date: 20040302
  Receipt Date: 20040223
  Transmission Date: 20041129
  Serious: Yes (Other)
  Sender: FDA-Public Use
  Company Number: 200410896BCC

PATIENT
  Sex: Male

DRUGS (2)
  1. ALKA-SELTZER PLUS COLD [Suspect]
     Indication: NASOPHARYNGITIS
     Dosage: ORAL
     Route: 048
  2. HIGH BLOOD PRESSURE MEDICATION [Concomitant]

REACTIONS (1)
  - TRANSIENT ISCHAEMIC ATTACK [None]
